FAERS Safety Report 20327284 (Version 1)
Quarter: 2022Q1

REPORT INFORMATION
  Report Type: Spontaneous
  Country: US (occurrence: None)
  Receive Date: 20220112
  Receipt Date: 20220112
  Transmission Date: 20220423
  Serious: No
  Sender: FDA-Public Use
  Company Number: None

PATIENT
  Age: 79 Year
  Sex: Male

DRUGS (1)
  1. TRAMADOL HYDROCHLORIDE [Suspect]
     Active Substance: TRAMADOL HYDROCHLORIDE
     Dosage: FREQUENCY : TWICE A DAY;?
     Route: 048
     Dates: start: 20210818, end: 20210908

REACTIONS (4)
  - Suicidal ideation [None]
  - Abdominal pain lower [None]
  - Decreased appetite [None]
  - Withdrawal syndrome [None]

NARRATIVE: CASE EVENT DATE: 20210908
